FAERS Safety Report 16079418 (Version 1)
Quarter: 2019Q1

REPORT INFORMATION
  Report Type: Spontaneous
  Country: US (occurrence: US)
  Receive Date: 20190315
  Receipt Date: 20190315
  Transmission Date: 20190418
  Serious: No
  Sender: FDA-Public Use
  Company Number: US-BRECKENRIDGE PHARMACEUTICAL, INC.-2064071

PATIENT
  Age: 59 Year
  Sex: Female
  Weight: 72.73 kg

DRUGS (3)
  1. AZELASTINE HYDROCHLORIDE. [Suspect]
     Active Substance: AZELASTINE HYDROCHLORIDE
     Route: 045
  2. FLONASE [Concomitant]
     Active Substance: FLUTICASONE PROPIONATE
  3. ZYRTEC [Concomitant]
     Active Substance: CETIRIZINE HYDROCHLORIDE

REACTIONS (2)
  - Product odour abnormal [None]
  - Migraine [None]
